FAERS Safety Report 21916466 (Version 5)
Quarter: 2024Q1

REPORT INFORMATION
  Report Type: Spontaneous
  Country: US (occurrence: US)
  Receive Date: 20230126
  Receipt Date: 20240112
  Transmission Date: 20240410
  Serious: Yes (Death)
  Sender: FDA-Public Use
  Company Number: US-PFIZER INC-PV202300016168

PATIENT
  Age: 81 Year
  Sex: Female
  Weight: 58.97 kg

DRUGS (1)
  1. VYNDAMAX [Suspect]
     Active Substance: TAFAMIDIS
     Indication: Cardiac amyloidosis
     Dosage: 61MG ONCE A DAY AT NOON
     Dates: start: 202112, end: 20231028

REACTIONS (9)
  - Atrial fibrillation [Fatal]
  - Hypothyroidism [Fatal]
  - Hypertension [Fatal]
  - Pleural effusion [Fatal]
  - Malaise [Unknown]
  - Illness [Unknown]
  - Asthenia [Unknown]
  - Blood sodium decreased [Unknown]
  - Product dose omission issue [Unknown]

NARRATIVE: CASE EVENT DATE: 20221201
